FAERS Safety Report 9508085 (Version 1)
Quarter: 2013Q1

REPORT INFORMATION
  Report Type: Spontaneous
  Country: US (occurrence: None)
  Receive Date: 20130305
  Receipt Date: 20130305
  Transmission Date: 20140127
  Serious: Yes (Other)
  Sender: FDA-Public Use
  Company Number: 163-21880-12032887

PATIENT
  Age: 77 Year
  Sex: Male
  Weight: 95 kg

DRUGS (2)
  1. REVLIMID [Suspect]
     Indication: PLASMA CELL MYELOMA
     Dosage: 08/13/2010 - DISCONTINUED?1 IN 1 D
     Route: 048
     Dates: start: 20100813
  2. NEUPOGEN (FILGRASTIM) [Concomitant]

REACTIONS (1)
  - Plasma cell myeloma [None]
